FAERS Safety Report 20648656 (Version 2)
Quarter: 2022Q2

REPORT INFORMATION
  Report Type: Report from Study
  Country: IN (occurrence: IN)
  Receive Date: 20220329
  Receipt Date: 20220415
  Transmission Date: 20220721
  Serious: Yes (Other)
  Sender: FDA-Public Use
  Company Number: IN-ASTELLAS-2022US011540

PATIENT
  Age: 53 Year
  Sex: Male

DRUGS (5)
  1. ISAVUCONAZOLE [Suspect]
     Active Substance: ISAVUCONAZOLE
     Indication: Rhinocerebral mucormycosis
     Route: 048
     Dates: start: 20210525, end: 20210526
  2. ISAVUCONAZOLE [Suspect]
     Active Substance: ISAVUCONAZOLE
     Route: 048
     Dates: start: 20210527
  3. ISAVUCONAZOLE [Suspect]
     Active Substance: ISAVUCONAZOLE
     Route: 048
     Dates: start: 20211218, end: 20211219
  4. ISAVUCONAZOLE [Suspect]
     Active Substance: ISAVUCONAZOLE
     Route: 048
     Dates: start: 20211220
  5. AMPHOTERICIN B [Concomitant]
     Active Substance: AMPHOTERICIN B
     Indication: Product used for unknown indication
     Dosage: UNK UNK, UNKNOWN FREQ.
     Route: 065

REACTIONS (7)
  - Oxygen saturation decreased [Unknown]
  - Oedema [Unknown]
  - White blood cell count increased [Unknown]
  - Nasal polyps [Unknown]
  - Nasopharyngitis [Unknown]
  - Cough [Unknown]
  - Dyspnoea [Unknown]

NARRATIVE: CASE EVENT DATE: 20210712
